FAERS Safety Report 13586506 (Version 1)
Quarter: 2017Q2

REPORT INFORMATION
  Report Type: Spontaneous
  Country: FR (occurrence: FR)
  Receive Date: 20170526
  Receipt Date: 20170526
  Transmission Date: 20170830
  Serious: Yes (Life-Threatening, Hospitalization)
  Sender: FDA-Public Use
  Company Number: FR-INDIVIOR LIMITED-INDV-102058-2017

PATIENT
  Age: 30 Year
  Sex: Male

DRUGS (2)
  1. COCAINE [Suspect]
     Active Substance: COCAINE
     Indication: PRODUCT USED FOR UNKNOWN INDICATION
     Dosage: UNK
     Route: 065
  2. SUBUTEX [Suspect]
     Active Substance: BUPRENORPHINE HYDROCHLORIDE
     Indication: PRODUCT USED FOR UNKNOWN INDICATION
     Dosage: UNK
     Route: 042
     Dates: start: 201702

REACTIONS (7)
  - Skin wound [Recovering/Resolving]
  - Drug use disorder [Unknown]
  - Erysipelas [Recovered/Resolved]
  - Oedema peripheral [Recovering/Resolving]
  - Wound necrosis [Unknown]
  - Intentional product use issue [Not Recovered/Not Resolved]
  - Streptococcus test positive [Unknown]

NARRATIVE: CASE EVENT DATE: 201702
